FAERS Safety Report 21675379 (Version 1)
Quarter: 2022Q4

REPORT INFORMATION
  Report Type: Spontaneous
  Country: US (occurrence: US)
  Receive Date: 20221202
  Receipt Date: 20221202
  Transmission Date: 20230113
  Serious: No
  Sender: FDA-Public Use
  Company Number: US-FreseniusKabi-FK202217134

PATIENT
  Sex: Male

DRUGS (2)
  1. PYRIDOXINE [Suspect]
     Active Substance: PYRIDOXINE
     Indication: Product used for unknown indication
     Route: 065
  2. ETHAMBUTOL\ISONIAZID\PYRAZINAMIDE\RIFAMPIN [Suspect]
     Active Substance: ETHAMBUTOL\ISONIAZID\PYRAZINAMIDE\RIFAMPIN
     Indication: Product used for unknown indication
     Dates: start: 20210804

REACTIONS (2)
  - Incision site discharge [Unknown]
  - Incision site swelling [Unknown]

NARRATIVE: CASE EVENT DATE: 20211201
